FAERS Safety Report 8309393-6 (Version None)
Quarter: 2012Q2

REPORT INFORMATION
  Report Type: 
  Country: None (occurrence: None)
  Receive Date: 20120424
  Receipt Date: 20120424
  Transmission Date: 20120825
  Serious: Yes (Hospitalization)
  Sender: FDA-Public Use
  Company Number: None

PATIENT
  Age: 53 Year
  Sex: Female
  Weight: 53 kg

DRUGS (4)
  1. CARBOPLATIN [Suspect]
     Indication: URETHRAL CANCER
     Dosage: CARBOAUC5 175MG
     Dates: start: 20120329, end: 20120329
  2. RIDAFOROLIMUS [Suspect]
     Dosage: 10MG PO DAYS 1-5, 8-12
     Route: 048
     Dates: start: 20120329, end: 20120402
  3. RIDAFOROLIMUS [Suspect]
     Dosage: 10MG PO DAYS 1-5, 8-12
     Route: 048
     Dates: start: 20120405, end: 20120409
  4. PACLITAXEL [Suspect]
     Indication: URETHRAL CANCER
     Dosage: TAXOL 175 MG/M2
     Dates: start: 20120329, end: 20120329

REACTIONS (11)
  - ASTHENIA [None]
  - WEIGHT DECREASED [None]
  - PLATELET COUNT DECREASED [None]
  - COUGH [None]
  - HYPOXIA [None]
  - DYSPNOEA EXERTIONAL [None]
  - FATIGUE [None]
  - PLEURAL EFFUSION [None]
  - HEART RATE INCREASED [None]
  - BLOOD PRESSURE DECREASED [None]
  - HYPOPHAGIA [None]
